FAERS Safety Report 18815609 (Version 1)
Quarter: 2021Q1

REPORT INFORMATION
  Report Type: Spontaneous
  Country: US (occurrence: US)
  Receive Date: 20210130
  Receipt Date: 20210130
  Transmission Date: 20210419
  Serious: Yes (Hospitalization)
  Sender: FDA-Public Use
  Company Number: None

PATIENT
  Age: 72 Year
  Sex: Male
  Weight: 83.23 kg

DRUGS (2)
  1. CARBOPLATIN (241240) [Suspect]
     Active Substance: CARBOPLATIN
     Dates: end: 20210120
  2. TAXOL [Suspect]
     Active Substance: PACLITAXEL
     Dates: end: 20210120

REACTIONS (7)
  - Nausea [None]
  - Constipation [None]
  - Abdominal pain [None]
  - Decreased appetite [None]
  - Dysphagia [None]
  - Vomiting [None]
  - Throat irritation [None]

NARRATIVE: CASE EVENT DATE: 20210121
